FAERS Safety Report 8117317-X (Version None)
Quarter: 2012Q1

REPORT INFORMATION
  Report Type: 
  Country: None (occurrence: None)
  Receive Date: 20120206
  Receipt Date: 20120125
  Transmission Date: 20120608
  Serious: Yes (Hospitalization)
  Sender: FDA-Public Use
  Company Number: NZ-ROCHE-1033578

PATIENT
  Age: 9 Year
  Sex: Male

DRUGS (2)
  1. TOCILIZUMAB [Suspect]
     Indication: JUVENILE ARTHRITIS
  2. PREDNISONE [Suspect]
     Indication: JUVENILE ARTHRITIS

REACTIONS (3)
  - NEUROLOGICAL SYMPTOM [None]
  - CONVULSION [None]
  - MYOCARDIAL INFARCTION [None]
